FAERS Safety Report 5337533-X (Version None)
Quarter: 2007Q2

REPORT INFORMATION
  Report Type: 
  Country: None (occurrence: None)
  Receive Date: 20070524
  Receipt Date: 20070509
  Transmission Date: 20071010
  Serious: Yes (Other)
  Sender: FDA-Public Use
  Company Number: DSA_29911_2007

PATIENT
  Age: 66 Year
  Sex: Female

DRUGS (3)
  1. VASOTEC [Suspect]
     Indication: HYPERTENSION
     Dosage: (2.5 MG QD ORAL)
     Route: 048
  2. VASOTEC [Suspect]
     Indication: HYPERTENSION
     Dosage: ()
  3. INSULIN [Concomitant]

REACTIONS (5)
  - ABDOMINAL DISCOMFORT [None]
  - BLOOD GLUCOSE INCREASED [None]
  - FEELING ABNORMAL [None]
  - MALAISE [None]
  - PHARMACEUTICAL PRODUCT COMPLAINT [None]
